FAERS Safety Report 17011595 (Version 3)
Quarter: 2020Q1

REPORT INFORMATION
  Report Type: Spontaneous
  Country: US (occurrence: US)
  Receive Date: 20191108
  Receipt Date: 20200205
  Transmission Date: 20200409
  Serious: Yes (Other)
  Sender: FDA-Public Use
  Company Number: US-JNJFOC-20191100531

PATIENT
  Sex: Male
  Weight: 111.23 kg

DRUGS (4)
  1. XARELTO [Suspect]
     Active Substance: RIVAROXABAN
     Indication: ATRIAL FIBRILLATION
     Route: 048
     Dates: start: 2014, end: 202001
  2. XARELTO [Suspect]
     Active Substance: RIVAROXABAN
     Indication: CEREBROVASCULAR ACCIDENT PROPHYLAXIS
     Dosage: FOR 4 DAYS
     Route: 048
     Dates: start: 202001, end: 202001
  3. XARELTO [Suspect]
     Active Substance: RIVAROXABAN
     Route: 048
  4. XARELTO [Suspect]
     Active Substance: RIVAROXABAN
     Route: 048
     Dates: start: 202001

REACTIONS (6)
  - Off label use [Unknown]
  - Haematoma [Unknown]
  - Product quality issue [Unknown]
  - Arthropathy [Unknown]
  - Product prescribing error [Unknown]
  - Post procedural haemorrhage [Unknown]

NARRATIVE: CASE EVENT DATE: 2019
